FAERS Safety Report 9550131 (Version 3)
Quarter: 2014Q2

REPORT INFORMATION
  Report Type: Spontaneous
  Country: US (occurrence: US)
  Receive Date: 20130924
  Receipt Date: 20140529
  Transmission Date: 20141212
  Serious: Yes (Other)
  Sender: FDA-Public Use
  Company Number: US-RB-058572-13

PATIENT
  Age: 0 Year
  Sex: Male

DRUGS (3)
  1. SUBOXONE TABLET [Suspect]
     Indication: PRODUCT USED FOR UNKNOWN INDICATION
     Dosage: DOSING DETAILS UNKNWON
     Route: 065
  2. SUBOXONE FILM [Suspect]
     Indication: DRUG DEPENDENCE
     Route: 064
     Dates: start: 2010, end: 20110302
  3. NICOTINE [Suspect]
     Indication: NICOTINE DEPENDENCE
     Dosage: MOTHER SMOKES 20 CIGARETTES DAILY
     Route: 064
     Dates: start: 201006, end: 20110302

REACTIONS (4)
  - Foetal exposure during pregnancy [Recovered/Resolved]
  - Diarrhoea neonatal [Recovered/Resolved]
  - Drug withdrawal syndrome neonatal [Recovered/Resolved]
  - Premature baby [Recovered/Resolved]
